FAERS Safety Report 16354263 (Version 1)
Quarter: 2019Q2

REPORT INFORMATION
  Report Type: Spontaneous
  Country: CH (occurrence: CH)
  Receive Date: 20190524
  Receipt Date: 20190524
  Transmission Date: 20190711
  Serious: Yes (Other)
  Sender: FDA-Public Use
  Company Number: CH-ASTRAZENECA-2019SE75798

PATIENT
  Age: 70 Year
  Sex: Female
  Weight: 72 kg

DRUGS (4)
  1. ATENOLOL. [Concomitant]
     Active Substance: ATENOLOL
     Indication: HYPERTENSION
     Dosage: 25 MG (ORAL), SINCE MORE THAN 15 YEARS
  2. ESTROGEN [Concomitant]
     Active Substance: ESTROGENS
     Indication: POSTMENOPAUSE
     Dosage: 1 MG (ORAL), SINCE MORE THAN 10 YEARS.
  3. FASENRA [Suspect]
     Active Substance: BENRALIZUMAB
     Indication: ASTHMA
     Dosage: 30.0MG UNKNOWN
     Route: 058
     Dates: start: 201809, end: 201904
  4. SYMBICORT [Concomitant]
     Active Substance: BUDESONIDE\FORMOTEROL FUMARATE DIHYDRATE
     Indication: ASTHMA
     Dosage: 200/6 - 600/6 (INHALATION),
     Dates: start: 201710

REACTIONS (1)
  - Neurofibromatosis [Not Recovered/Not Resolved]

NARRATIVE: CASE EVENT DATE: 201901
